FAERS Safety Report 25045960 (Version 1)
Quarter: 2025Q1

REPORT INFORMATION
  Report Type: Report from Study
  Country: TN (occurrence: TN)
  Receive Date: 20250306
  Receipt Date: 20250306
  Transmission Date: 20250408
  Serious: Yes (Congenital Anomaly, Other)
  Sender: EMD SERONO INC
  Company Number: TN-Merck Healthcare KGaA-2025010358

PATIENT
  Sex: Male
  Weight: 3 kg

DRUGS (3)
  1. REBIF [Suspect]
     Active Substance: INTERFERON BETA-1A
     Indication: Multiple sclerosis
  2. SERETIDE [Concomitant]
     Active Substance: FLUTICASONE PROPIONATE\SALMETEROL XINAFOATE
     Indication: Asthma
  3. DESLOR [Concomitant]
     Indication: Asthma

REACTIONS (4)
  - Congenital vesicoureteric reflux [Unknown]
  - Pyelocaliectasis [Unknown]
  - Premature baby [Recovered/Resolved]
  - Foetal exposure during pregnancy [Recovered/Resolved]
